FAERS Safety Report 11074336 (Version 1)
Quarter: 2015Q2

REPORT INFORMATION
  Report Type: Spontaneous
  Country: GB (occurrence: GB)
  Receive Date: 20150428
  Receipt Date: 20150428
  Transmission Date: 20150821
  Serious: Yes (Death, Hospitalization)
  Sender: FDA-Public Use
  Company Number: PHHY2015GB049657

PATIENT
  Age: 45 Year
  Sex: Male

DRUGS (2)
  1. CIPROFLOXACIN. [Suspect]
     Active Substance: CIPROFLOXACIN
     Indication: MYCOBACTERIUM FORTUITUM INFECTION
     Route: 065
  2. CYCLOPHOSPHAMIDE. [Suspect]
     Active Substance: CYCLOPHOSPHAMIDE
     Indication: MYCOBACTERIUM FORTUITUM INFECTION
     Route: 065

REACTIONS (4)
  - H1N1 influenza [Fatal]
  - Bronchopulmonary aspergillosis [Fatal]
  - Drug ineffective [Unknown]
  - Neutropenic sepsis [Fatal]
